FAERS Safety Report 8886767 (Version 1)
Quarter: 2012Q4

REPORT INFORMATION
  Report Type: 
  Country: US (occurrence: US)
  Receive Date: 20121105
  Receipt Date: 20121105
  Transmission Date: 20130627
  Serious: No
  Sender: FDA-Public Use
  Company Number: US-PFIZER INC-2012267289

PATIENT
  Age: 58 Year
  Sex: Male
  Weight: 104 kg

DRUGS (5)
  1. NEURONTIN [Suspect]
     Indication: BIPOLAR DISORDER
     Dosage: 900 mg, at night
     Dates: start: 201210
  2. LISINOPRIL [Concomitant]
     Indication: HYPERTENSION
     Dosage: 40 mg, 2x/day
  3. ZYPREXA [Concomitant]
     Indication: MOOD DEPRESSION
     Dosage: 5 mg, daily
  4. LAMICTAL [Concomitant]
     Indication: MOOD DEPRESSION
     Dosage: 100 mg, 3x/day
  5. PARNATE [Concomitant]
     Indication: DEPRESSION
     Dosage: 20 mg in the morning and 10 mg at afternoon

REACTIONS (2)
  - Fatigue [Unknown]
  - Off label use [Unknown]
